FAERS Safety Report 4273080-4 (Version None)
Quarter: 2004Q1

REPORT INFORMATION
  Report Type: 
  Country: None (occurrence: None)
  Receive Date: 20040114
  Receipt Date: 20040106
  Transmission Date: 20041129
  Serious: Yes (Disabling)
  Sender: FDA-Public Use
  Company Number: 2004GB00023

PATIENT
  Age: 66 Year
  Sex: Male
  Weight: 85.5 kg

DRUGS (3)
  1. FELODIPINE [Suspect]
     Indication: DYSPEPSIA
     Dosage: 5 MG QD PO
     Route: 048
     Dates: start: 20031210, end: 20031219
  2. CIMETIDINE HCL [Suspect]
     Indication: DYSPEPSIA
     Dosage: 800 MG BID PO
     Route: 048
     Dates: start: 19980101, end: 20031219
  3. FLUARIX [Concomitant]

REACTIONS (2)
  - JAUNDICE [None]
  - LIVER FUNCTION TEST ABNORMAL [None]
